FAERS Safety Report 12722697 (Version 1)
Quarter: 2016Q3

REPORT INFORMATION
  Report Type: Spontaneous
  Country: US (occurrence: US)
  Receive Date: 20160907
  Receipt Date: 20160907
  Transmission Date: 20161109
  Serious: No
  Sender: FDA-Public Use
  Company Number: US-MISSION PHARMACAL COMPANY-1057149

PATIENT
  Age: 35 Year
  Sex: Female

DRUGS (1)
  1. THIOLA [Suspect]
     Active Substance: TIOPRONIN
     Indication: AMINO ACID METABOLISM DISORDER
     Route: 065
     Dates: start: 20160702

REACTIONS (3)
  - Nephrolithiasis [None]
  - Hospitalisation [None]
  - Drug ineffective [Unknown]

NARRATIVE: CASE EVENT DATE: 20160828
